FAERS Safety Report 4945273-1 (Version None)
Quarter: 2006Q1

REPORT INFORMATION
  Report Type: 
  Country: None (occurrence: None)
  Receive Date: 20060117
  Receipt Date: 20050414
  Transmission Date: 20060701
  Serious: Yes (Other)
  Sender: FDA-Public Use
  Company Number: 402146

PATIENT
  Age: 19 Year
  Sex: Male

DRUGS (2)
  1. ROCEPHIN [Suspect]
     Indication: SUBACUTE ENDOCARDITIS
  2. GENTAMICIN [Concomitant]

REACTIONS (1)
  - ALANINE AMINOTRANSFERASE INCREASED [None]
